FAERS Safety Report 8807827 (Version 1)
Quarter: 2012Q4

REPORT INFORMATION
  Report Type: 
  Country: US (occurrence: US)
  Receive Date: 20120925
  Receipt Date: 20120925
  Transmission Date: 20130627
  Serious: Yes (Death)
  Sender: FDA-Public Use
  Company Number: US-GLAXOSMITHKLINE-A0991504A

PATIENT
  Age: 51 Year
  Sex: Male

DRUGS (5)
  1. VOTRIENT [Suspect]
     Indication: MALIGNANT SOFT TISSUE NEOPLASM
     Dosage: 800MG Per day
     Route: 048
     Dates: start: 20120730, end: 20120815
  2. OMEPRAZOLE [Concomitant]
  3. MIRTAZAPINE [Concomitant]
  4. LORAZEPAM [Concomitant]
  5. DEXAMETHASONE [Concomitant]

REACTIONS (3)
  - Neoplasm malignant [Fatal]
  - Sarcoma [Fatal]
  - Drug ineffective [Unknown]
